FAERS Safety Report 5097169-5 (Version None)
Quarter: 2006Q3

REPORT INFORMATION
  Report Type: 
  Country: None (occurrence: None)
  Receive Date: 20060906
  Receipt Date: 20060830
  Transmission Date: 20061208
  Serious: Yes (Death)
  Sender: FDA-Public Use
  Company Number: US-BRISTOL-MYERS SQUIBB COMPANY-13492715

PATIENT
  Age: 9 Year
  Sex: Male

DRUGS (1)
  1. DESYREL [Suspect]
     Route: 048

REACTIONS (1)
  - DEATH [None]
